FAERS Safety Report 5121666-7 (Version None)
Quarter: 2006Q4

REPORT INFORMATION
  Report Type: 
  Country: None (occurrence: None)
  Receive Date: 20061006
  Receipt Date: 20060925
  Transmission Date: 20070319
  Serious: Yes (Hospitalization)
  Sender: FDA-Public Use
  Company Number: ES-JNJFOC-20060906576

PATIENT
  Age: 10 Year
  Sex: Male

DRUGS (5)
  1. CONCERTA [Suspect]
     Route: 048
  2. CONCERTA [Suspect]
     Indication: DRUG USE FOR UNKNOWN INDICATION
     Route: 048
  3. ROMILAR [Suspect]
     Indication: COUGH
     Route: 048
  4. DYNAMOGEN [Concomitant]
     Indication: DRUG USE FOR UNKNOWN INDICATION
     Route: 048
  5. AMOXICILLIN TRIHYDRATE [Concomitant]
     Indication: NASOPHARYNGITIS
     Route: 048

REACTIONS (3)
  - COORDINATION ABNORMAL [None]
  - DIPLOPIA [None]
  - NYSTAGMUS [None]
